FAERS Safety Report 7047813-8 (Version None)
Quarter: 2010Q4

REPORT INFORMATION
  Report Type: 
  Country: None (occurrence: None)
  Receive Date: 20101015
  Receipt Date: 20101013
  Transmission Date: 20110411
  Serious: Yes (Other)
  Sender: FDA-Public Use
  Company Number: US-PFIZER INC-2010130699

PATIENT

DRUGS (2)
  1. FLAGYL [Suspect]
     Route: 048
  2. ZOSYN [Suspect]

REACTIONS (1)
  - NEUTROPENIA [None]
